FAERS Safety Report 9196357 (Version 2)
Quarter: 2013Q2

REPORT INFORMATION
  Report Type: Spontaneous
  Country: JP (occurrence: JP)
  Receive Date: 20130328
  Receipt Date: 20130401
  Transmission Date: 20140414
  Serious: Yes (Hospitalization)
  Sender: FDA-Public Use
  Company Number: JP-PFIZER INC-2013089278

PATIENT
  Age: 4 Decade
  Sex: Female

DRUGS (4)
  1. CABERGOLINE [Suspect]
     Indication: HYPERPROLACTINAEMIA
     Dosage: 0.25 MG, WEEKLY
     Route: 048
  2. MUCOSOLVAN [Concomitant]
     Dosage: UNK
  3. MUCODYNE [Concomitant]
     Dosage: UNK
     Route: 048
  4. PL [Concomitant]
     Dosage: UNK

REACTIONS (1)
  - Hypokalaemia [Recovered/Resolved]
